FAERS Safety Report 9456990 (Version 1)
Quarter: 2013Q3

REPORT INFORMATION
  Report Type: Spontaneous
  Country: BR (occurrence: BR)
  Receive Date: 20130814
  Receipt Date: 20130814
  Transmission Date: 20140515
  Serious: Yes (Other)
  Sender: FDA-Public Use
  Company Number: BR-AMGEN-BRASP2013056711

PATIENT
  Age: 69 Year
  Sex: Male
  Weight: 87 kg

DRUGS (3)
  1. ENBREL [Suspect]
     Indication: PSORIATIC ARTHROPATHY
     Dosage: 50 MG, ONCE WEEKLY
     Route: 058
     Dates: start: 201211
  2. FRONTAL [Concomitant]
     Dosage: 1 MG, 1X/DAY
     Route: 048
     Dates: start: 1988
  3. DIOVAN [Concomitant]
     Dosage: 80 MG, 1X/DAY
     Route: 048

REACTIONS (2)
  - Eye disorder [Recovered/Resolved]
  - Ocular hyperaemia [Recovered/Resolved]
